FAERS Safety Report 4566668-4 (Version None)
Quarter: 2005Q1

REPORT INFORMATION
  Report Type: 
  Country: None (occurrence: None)
  Receive Date: 20050201
  Receipt Date: 20041020
  Transmission Date: 20050727
  Serious: Yes (Hospitalization)
  Sender: FDA-Public Use
  Company Number: FR-MERCK-0410FRA00066

PATIENT
  Age: 82 Year
  Sex: Female
  Weight: 78 kg

DRUGS (2)
  1. VIOXX [Suspect]
     Route: 048
     Dates: start: 20020301, end: 20040401
  2. CELECOXIB [Suspect]
     Route: 048
     Dates: start: 20040402, end: 20040908

REACTIONS (3)
  - LEUKOCYTOCLASTIC VASCULITIS [None]
  - VARICOSE ULCERATION [None]
  - VASCULAR PURPURA [None]
